FAERS Safety Report 7313449-4 (Version None)
Quarter: 2011Q1

REPORT INFORMATION
  Report Type: 
  Country: None (occurrence: None)
  Receive Date: 20110225
  Receipt Date: 20110215
  Transmission Date: 20110831
  Serious: No
  Sender: FDA-Public Use
  Company Number: US-PFIZER INC-2010152594

PATIENT
  Sex: Male
  Weight: 62.585 kg

DRUGS (1)
  1. XALATAN [Suspect]
     Indication: OPEN ANGLE GLAUCOMA
     Dosage: 1 GTT, BOTH EYES, 1X/DAY
     Dates: start: 20030101, end: 20050101

REACTIONS (1)
  - DRUG INEFFECTIVE [None]
